FAERS Safety Report 4347956-3 (Version None)
Quarter: 2004Q2

REPORT INFORMATION
  Report Type: 
  Country: None (occurrence: None)
  Receive Date: 20040422
  Receipt Date: 20040406
  Transmission Date: 20050107
  Serious: Yes (Death, Hospitalization)
  Sender: FDA-Public Use
  Company Number: 195617

PATIENT
  Age: 57 Year
  Sex: Female
  Weight: 99.7913 kg

DRUGS (2)
  1. AVONEX [Suspect]
     Indication: MULTIPLE SCLEROSIS
     Dosage: 30 MCG QW IM
     Route: 030
     Dates: start: 19990101, end: 20020801
  2. PILLS [Concomitant]

REACTIONS (6)
  - ABDOMINAL HYSTERECTOMY [None]
  - COLON INJURY [None]
  - IATROGENIC INJURY [None]
  - LUNG CANCER METASTATIC [None]
  - PERITONEAL CARCINOMA [None]
  - PULMONARY OEDEMA [None]
